FAERS Safety Report 9816917 (Version 1)
Quarter: 2014Q1

REPORT INFORMATION
  Report Type: Spontaneous
  Country: DK (occurrence: FR)
  Receive Date: 20140114
  Receipt Date: 20140114
  Transmission Date: 20141002
  Serious: Yes (Hospitalization)
  Sender: FDA-Public Use
  Company Number: FR-FRI-1000052854

PATIENT
  Age: 42 Year
  Sex: Male

DRUGS (13)
  1. ESCITALOPRAM [Suspect]
     Indication: DEPRESSION
     Dosage: 10 MG
     Route: 048
  2. ESCITALOPRAM [Suspect]
     Dosage: OVERDOSE :22 TABLETS (220 MG ) ONCE
     Route: 048
     Dates: start: 20130626, end: 20130626
  3. THERALENE [Suspect]
     Indication: INSOMNIA
     Dosage: 20 DROPS ON EVENING
     Route: 048
  4. THERALENE [Suspect]
     Dosage: OVERDOSE : 1 BOTTLE ONCE
     Route: 048
     Dates: start: 20130626, end: 20130626
  5. TERCIAN [Suspect]
     Indication: DEPRESSION
     Dosage: 20 DF
     Route: 048
  6. TERCIAN [Suspect]
     Dosage: OVERDOSE : 1 BOTTLE ONCE
     Route: 048
     Dates: start: 20130626, end: 20130626
  7. DEPAKOTE [Suspect]
     Indication: BIPOLAR DISORDER
     Dosage: 1000 MG
     Route: 048
  8. DEPAKOTE [Suspect]
     Dosage: OVERDOSE : 60 TABLETS (30 GRAMS ) ONCE
     Route: 048
     Dates: start: 20130626, end: 20130626
  9. THERALITHE LP [Suspect]
     Indication: BIPOLAR DISORDER
     Route: 048
  10. THERALITHE LP [Suspect]
     Dosage: OVERDOSE : 210 TABLETS (84 GRAMS ) ONCE
     Route: 048
     Dates: start: 20130626, end: 20130626
  11. XANAX [Suspect]
     Dosage: OVERDOSE : 100 DF ONCE
     Route: 048
     Dates: start: 20130626, end: 20130626
  12. ABILIFY [Suspect]
     Dosage: OVERDOSE : 14 DF
     Route: 048
     Dates: start: 20130626, end: 20130626
  13. LYSANXIA [Concomitant]
     Dosage: 10 MG

REACTIONS (3)
  - Coma [Recovered/Resolved]
  - Convulsion [Recovered/Resolved]
  - Intentional overdose [Recovered/Resolved]
